FAERS Safety Report 4509116-2 (Version None)
Quarter: 2004Q4

REPORT INFORMATION
  Report Type: 
  Country: None (occurrence: None)
  Receive Date: 20041025
  Receipt Date: 20040823
  Transmission Date: 20050328
  Serious: Yes (Hospitalization, Other)
  Sender: FDA-Public Use
  Company Number: US-JNJFOC-20040807829

PATIENT
  Age: 50 Year
  Sex: Female

DRUGS (6)
  1. INFLIXIMAB (INFLIXIMAB, RECOMBINANT) LYOPHILIZED POWDER [Suspect]
     Indication: RHEUMATOID ARTHRITIS
     Dosage: INTRAVENOUS
     Route: 042
     Dates: start: 20030415, end: 20030901
  2. METHOTREXATE [Concomitant]
  3. PREDNISONE [Concomitant]
  4. ELAVIL [Concomitant]
  5. ACIPHEX [Concomitant]
  6. ANTIBIOTICS (ANTIBIOTICS) [Concomitant]

REACTIONS (2)
  - STAPHYLOCOCCAL INFECTION [None]
  - SYSTEMIC LUPUS ERYTHEMATOSUS [None]
